FAERS Safety Report 8791028 (Version 2)
Quarter: 2013Q1

REPORT INFORMATION
  Report Type: Spontaneous
  Country: US (occurrence: None)
  Receive Date: 20120910
  Receipt Date: 20121005
  Transmission Date: 20140127
  Serious: Yes (Other)
  Sender: FDA-Public Use
  Company Number: US-2012-11337

PATIENT
  Age: 62 Year
  Sex: Male

DRUGS (24)
  1. SAMSCA (TOLVAPTAN) TABLET [Suspect]
     Indication: BLOOD SODIUM DECREASED
     Route: 048
     Dates: start: 20120604
  2. ECOTRIN (ACETYLSALICYLIC ACID) [Concomitant]
  3. COREG (CARVEDILOL) [Concomitant]
  4. NITROGLYCERIN (NITROGLYCERIN) [Concomitant]
  5. FLEET ENEMA (SODIUM PHOSPHATE, SODIUM PHOSPHATE DIBASIC) [Concomitant]
  6. RESTORIL (TEMAZEPAM) [Concomitant]
  7. ZOFRAN (ONDANSETRON HYDROCHLORIDE) [Concomitant]
  8. TYLENOL (PARACETAMOL) [Concomitant]
  9. MILK OF MAGNESIA (MAGNESIUM HYDROXIDE) [Concomitant]
  10. MELATONIN (MELATONIN) [Concomitant]
  11. NITROQUICK (GLYCERYL TRINITRATE) [Concomitant]
  12. PHENERGAN (PROMETHAZINE HYDROCHLORIDE) [Concomitant]
  13. XENADERM (MYROXYLON BALSAMUM VAR. PEREIRAE BALSAM, RICINUS COMMUNIS OIL, TRYPSIN) [Concomitant]
  14. ZYLOPRIM (ALLOPURINOL) [Concomitant]
  15. KAYEXALATE (SODIUM POLYSTYRENE SULFONATE) [Concomitant]
  16. DOBUTAMINE (DOBUTAMINE HYDROCHLORIDE) [Concomitant]
  17. INSULIN (INSULIN HUMAN) [Concomitant]
  18. ATIVAN (LORAZEPAM) [Concomitant]
  19. INSPRA (EPLERENONE) [Concomitant]
  20. VITAMIN K (MENADIONE) [Concomitant]
  21. PRIMACOR (MILRINONE LACTATE) [Concomitant]
  22. VITAMIN K (MENADIONE SODIUM BISULFITE) [Concomitant]
  23. PHENERGAN (PROMETHAZINE) [Concomitant]
  24. LIDOCAINE (LIDOCAINE HYDROCHLORIDE) [Concomitant]

REACTIONS (4)
  - Rapid correction of hyponatraemia [None]
  - Osmotic demyelination syndrome [None]
  - Nervous system disorder [None]
  - Paralysis [None]
